FAERS Safety Report 24767644 (Version 1)
Quarter: 2024Q4

REPORT INFORMATION
  Report Type: Spontaneous
  Country: US (occurrence: US)
  Receive Date: 20241223
  Receipt Date: 20241223
  Transmission Date: 20250115
  Serious: No
  Sender: SANDOZ
  Company Number: US-SANDOZ-SDZ2024US103636

PATIENT

DRUGS (1)
  1. TRIAMCINOLONE ACETONIDE [Suspect]
     Active Substance: TRIAMCINOLONE ACETONIDE
     Indication: Product used for unknown indication
     Route: 065

REACTIONS (5)
  - Burning sensation [Unknown]
  - Papule [Unknown]
  - Erythema [Unknown]
  - Rash [Unknown]
  - Pruritus [Unknown]
